FAERS Safety Report 7760341-7 (Version None)
Quarter: 2011Q3

REPORT INFORMATION
  Report Type: 
  Country: None (occurrence: None)
  Receive Date: 20110919
  Receipt Date: 20110915
  Transmission Date: 20111222
  Serious: Yes (Other)
  Sender: FDA-Public Use
  Company Number: US-PFIZER INC-2011220165

PATIENT
  Sex: Female
  Weight: 104.31 kg

DRUGS (7)
  1. KLOR-CON [Concomitant]
     Dosage: UNK
  2. HYDROCODONE [Concomitant]
     Dosage: UNK
  3. FUROSEMIDE [Concomitant]
     Dosage: UNK
  4. NICOTROL [Suspect]
     Dosage: UNK, DAILY
  5. CARVEDILOL [Concomitant]
     Dosage: UNK
  6. PRAVASTATIN [Concomitant]
     Dosage: UNK
  7. NICOTROL [Suspect]
     Indication: SMOKING CESSATION THERAPY
     Dosage: FOUR TO 6 TIMES DAILY

REACTIONS (2)
  - RENAL IMPAIRMENT [None]
  - DYSURIA [None]
